FAERS Safety Report 8059656-7 (Version None)
Quarter: 2012Q1

REPORT INFORMATION
  Report Type: 
  Country: None (occurrence: None)
  Receive Date: 20120120
  Receipt Date: 20120112
  Transmission Date: 20120608
  Serious: Yes (Hospitalization)
  Sender: FDA-Public Use
  Company Number: PHHY2011US48461

PATIENT
  Sex: Female

DRUGS (5)
  1. GILENYA [Suspect]
     Indication: MULTIPLE SCLEROSIS
     Dosage: 0.5 MG, QD
     Route: 048
     Dates: start: 20110507, end: 20120102
  2. MOTRIN [Concomitant]
  3. SYNTHROID [Concomitant]
  4. NEURONTIN [Concomitant]
  5. AMBIEN [Concomitant]

REACTIONS (6)
  - DIARRHOEA [None]
  - VISUAL IMPAIRMENT [None]
  - VOMITING [None]
  - HYPOAESTHESIA [None]
  - NAUSEA [None]
  - ABDOMINAL PAIN [None]
